FAERS Safety Report 5056955-8 (Version None)
Quarter: 2006Q3

REPORT INFORMATION
  Report Type: 
  Country: None (occurrence: None)
  Receive Date: 20060721
  Receipt Date: 20060718
  Transmission Date: 20061208
  Serious: Yes (Hospitalization)
  Sender: FDA-Public Use
  Company Number: US-RB-3599-2006

PATIENT
  Sex: Male

DRUGS (1)
  1. BUPRENORPHINE, NALOXONE [Suspect]
     Indication: DRUG DEPENDENCE
     Route: 060
     Dates: start: 20060115

REACTIONS (3)
  - GLOSSODYNIA [None]
  - HYPOAESTHESIA ORAL [None]
  - SWELLING FACE [None]
